FAERS Safety Report 5469342-5 (Version None)
Quarter: 2007Q3

REPORT INFORMATION
  Report Type: 
  Country: None (occurrence: None)
  Receive Date: 20070926
  Receipt Date: 20070926
  Transmission Date: 20080115
  Serious: No
  Sender: FDA-Public Use
  Company Number: None

PATIENT
  Sex: Female

DRUGS (1)
  1. LORATADINE [Suspect]
     Indication: HYPERSENSITIVITY
     Dosage: 5MG/5ML 1 TSP DAILY PO
     Route: 048
     Dates: start: 20070906, end: 20070920

REACTIONS (5)
  - DIARRHOEA [None]
  - DRUG INEFFECTIVE [None]
  - HEADACHE [None]
  - INSOMNIA [None]
  - STOMATITIS [None]
